FAERS Safety Report 19222368 (Version 1)
Quarter: 2021Q2

REPORT INFORMATION
  Report Type: Spontaneous
  Country: US (occurrence: US)
  Receive Date: 20210506
  Receipt Date: 20210506
  Transmission Date: 20210717
  Serious: Yes (Hospitalization)
  Sender: FDA-Public Use
  Company Number: None

PATIENT
  Age: 29 Year
  Sex: Female
  Weight: 65.7 kg

DRUGS (1)
  1. KENALOG [Suspect]
     Active Substance: TRIAMCINOLONE ACETONIDE
     Indication: HYPERSENSITIVITY
     Dosage: ?          OTHER FREQUENCY:1 TIME INJECTION;?
     Route: 030
     Dates: start: 20210426, end: 20210426

REACTIONS (4)
  - Palpitations [None]
  - Chest pain [None]
  - Dyspepsia [None]
  - Anxiety [None]

NARRATIVE: CASE EVENT DATE: 20210428
